FAERS Safety Report 16489136 (Version 2)
Quarter: 2019Q3

REPORT INFORMATION
  Report Type: Report from Study
  Country: AU (occurrence: AU)
  Receive Date: 20190628
  Receipt Date: 20190723
  Transmission Date: 20191004
  Serious: No
  Sender: FDA-Public Use
  Company Number: AU-ROCHE-2345988

PATIENT
  Age: 44 Year
  Sex: Male

DRUGS (2)
  1. OCREVUS [Suspect]
     Active Substance: OCRELIZUMAB
     Dosage: THIS DOSE IS AS PER THE INITIAL RATE OF OCREVUS, ONGOING : YES
     Route: 042
     Dates: start: 201907
  2. OCREVUS [Suspect]
     Active Substance: OCRELIZUMAB
     Indication: RELAPSING-REMITTING MULTIPLE SCLEROSIS
     Dosage: ONGOING: YES
     Route: 041
     Dates: start: 2018

REACTIONS (2)
  - Genital herpes [Recovering/Resolving]
  - Lower respiratory tract infection [Not Recovered/Not Resolved]

NARRATIVE: CASE EVENT DATE: 201906
